FAERS Safety Report 5274396-5 (Version None)
Quarter: 2007Q1

REPORT INFORMATION
  Report Type: 
  Country: None (occurrence: None)
  Receive Date: 20070323
  Receipt Date: 20070314
  Transmission Date: 20070707
  Serious: Yes (Other)
  Sender: FDA-Public Use
  Company Number: FR-PFIZER INC-2007010278

PATIENT
  Sex: Male
  Weight: 70.5 kg

DRUGS (5)
  1. LYRICA [Suspect]
     Indication: NEURITIS
  2. ISOPTIN [Concomitant]
     Indication: HYPERTENSION
  3. ATACAND [Concomitant]
     Indication: HYPERTENSION
     Dates: start: 20050101
  4. LIPANTHYL [Concomitant]
     Indication: HYPERCHOLESTEROLAEMIA
     Dates: start: 20030101
  5. ASPIRIN [Concomitant]
     Indication: ANTIPLATELET THERAPY
     Dates: start: 20030101

REACTIONS (4)
  - AUTONOMIC NERVOUS SYSTEM IMBALANCE [None]
  - BULIMIA NERVOSA [None]
  - INSOMNIA [None]
  - WEIGHT INCREASED [None]
